FAERS Safety Report 4551170-6 (Version None)
Quarter: 2005Q1

REPORT INFORMATION
  Report Type: 
  Country: None (occurrence: None)
  Receive Date: 20050113
  Receipt Date: 20050106
  Transmission Date: 20050727
  Serious: Yes (Hospitalization)
  Sender: FDA-Public Use
  Company Number: FR-BRISTOL-MYERS SQUIBB COMPANY-12815205

PATIENT
  Age: 23 Year
  Sex: Female

DRUGS (5)
  1. ZERIT [Suspect]
     Indication: HIV INFECTION
     Route: 048
     Dates: start: 20010201, end: 20030321
  2. EPIVIR [Suspect]
     Indication: HIV INFECTION
     Route: 048
     Dates: start: 20010201, end: 20030321
  3. VIRAMUNE [Suspect]
     Indication: HIV INFECTION
     Dosage: 1 TABLET DAILY UNTIL 04-MAR-2003
     Route: 048
     Dates: start: 20030214, end: 20030321
  4. DI-ANTALVIC [Suspect]
     Route: 048
     Dates: start: 20010101, end: 20030317
  5. DOXY-II [Suspect]
     Route: 048
     Dates: start: 20030204, end: 20030213

REACTIONS (3)
  - CONJUNCTIVITIS [None]
  - RASH MACULO-PAPULAR [None]
  - STEVENS-JOHNSON SYNDROME [None]
